FAERS Safety Report 7060819-8 (Version None)
Quarter: 2010Q4

REPORT INFORMATION
  Report Type: 
  Country: None (occurrence: None)
  Receive Date: 20101025
  Receipt Date: 20101013
  Transmission Date: 20110411
  Serious: Yes (Hospitalization)
  Sender: FDA-Public Use
  Company Number: FR-ELI_LILLY_AND_COMPANY-FR201010003007

PATIENT
  Sex: Female

DRUGS (11)
  1. GEMZAR [Suspect]
     Indication: ADENOCARCINOMA PANCREAS
     Dosage: 1600 MG INFUSION
     Route: 042
     Dates: start: 20100401, end: 20100729
  2. ONDANSETRON HCL [Concomitant]
     Dosage: UNK, UNKNOWN
     Route: 065
  3. ASPEGIC 1000 [Concomitant]
     Dosage: UNK, UNKNOWN
     Route: 065
  4. NEXIUM [Concomitant]
     Dosage: UNK, UNKNOWN
     Route: 065
  5. CREON [Concomitant]
     Dosage: UNK, UNKNOWN
     Route: 065
  6. ORACILLINE [Concomitant]
     Dosage: UNK, UNKNOWN
     Route: 065
  7. NOVORAPID [Concomitant]
     Dosage: UNK, UNKNOWN
     Route: 065
  8. PERINDOPRIL ERBUMINE [Concomitant]
     Dosage: UNK, UNKNOWN
     Route: 065
  9. ATARAX [Concomitant]
     Dosage: UNK, UNKNOWN
     Route: 065
  10. SEROPLEX [Concomitant]
     Dosage: UNK, UNKNOWN
     Route: 065
  11. CARDENSIEL [Concomitant]
     Dosage: UNK, UNKNOWN
     Route: 065

REACTIONS (7)
  - ASTHENIA [None]
  - HAPTOGLOBIN DECREASED [None]
  - HYPERBILIRUBINAEMIA [None]
  - HYPOTENSION [None]
  - JAUNDICE [None]
  - PANCYTOPENIA [None]
  - URINARY TRACT INFECTION [None]
